FAERS Safety Report 15363536 (Version 3)
Quarter: 2019Q1

REPORT INFORMATION
  Report Type: Spontaneous
  Country: US (occurrence: US)
  Receive Date: 20180907
  Receipt Date: 20190115
  Transmission Date: 20190417
  Serious: Yes (Death, Other)
  Sender: FDA-Public Use
  Company Number: US-EX USA HOLDINGS-EXHL20180478

PATIENT
  Age: 64 Year
  Sex: Male

DRUGS (4)
  1. BENZNIDAZOLE. [Suspect]
     Active Substance: BENZNIDAZOLE
     Indication: AMERICAN TRYPANOSOMIASIS
  2. BENZNIDAZOLE. [Suspect]
     Active Substance: BENZNIDAZOLE
     Indication: AMERICAN TRYPANOSOMIASIS
     Dosage: 200 MG
     Route: 048
     Dates: start: 20180828, end: 20181106
  3. BENZNIDAZOLE. [Suspect]
     Active Substance: BENZNIDAZOLE
     Indication: MENINGOENCEPHALITIS AMOEBIC
     Dosage: 150 MG
     Route: 048
     Dates: start: 20180824, end: 20180827
  4. DEXAMETHASONE. [Concomitant]
     Active Substance: DEXAMETHASONE
     Indication: IMMUNOSUPPRESSION
     Dosage: UNKNOWN

REACTIONS (4)
  - Underdose [None]
  - Product use issue [None]
  - Death [Fatal]
  - Thrombocytopenia [Not Recovered/Not Resolved]

NARRATIVE: CASE EVENT DATE: 20180824
